FAERS Safety Report 7557262-1 (Version None)
Quarter: 2011Q2

REPORT INFORMATION
  Report Type: 
  Country: None (occurrence: None)
  Receive Date: 20110620
  Receipt Date: 20070326
  Transmission Date: 20111010
  Serious: Yes (Other)
  Sender: FDA-Public Use
  Company Number: PHHO2006BR11419

PATIENT
  Age: 52 Year
  Sex: Male
  Weight: 96 kg

DRUGS (6)
  1. ATENOLOL [Concomitant]
     Indication: HYPERTENSION
  2. AMLODIPINE BESYLATE [Concomitant]
     Indication: HYPERTENSION
  3. FORMOTEROL FUMARATE [Suspect]
     Indication: BRONCHITIS
     Dates: start: 20060608
  4. HYDROCHLOROTHIAZIDE [Concomitant]
     Indication: HYPERTENSION
  5. RINOSORO [Concomitant]
     Indication: NASAL CONGESTION
  6. NASAL SPRAY [Concomitant]
     Indication: NASAL CONGESTION

REACTIONS (6)
  - SYNCOPE [None]
  - TREMOR [None]
  - COUGH [None]
  - PALLOR [None]
  - DIZZINESS [None]
  - MUSCULAR WEAKNESS [None]
